FAERS Safety Report 5177725-6 (Version None)
Quarter: 2006Q4

REPORT INFORMATION
  Report Type: 
  Country: None (occurrence: None)
  Receive Date: 20061207
  Receipt Date: 20061127
  Transmission Date: 20070319
  Serious: Yes (Hospitalization)
  Sender: FDA-Public Use
  Company Number: APP200600307

PATIENT
  Age: 69 Year
  Sex: Male
  Weight: 78.8352 kg

DRUGS (10)
  1. FLUOROURACIL [Suspect]
     Indication: BILIARY NEOPLASM
     Dosage: (375 MG/M2, ONCE DAILY FOR 5 DAYS), INTRAVENOUS BOLUS
     Route: 040
     Dates: start: 20060410
  2. LEUCOVORIN CALCIUM [Suspect]
     Indication: BILIARY NEOPLASM
     Dosage: (25 MG/M2, ONCE DAILY FOR 5 DAYS), INTRAVENOUS
     Route: 042
     Dates: start: 20060410
  3. OSCAL              (CALCIUM CARBONATE) [Concomitant]
  4. PREDNISONE TAB [Concomitant]
  5. PREVACID [Concomitant]
  6. COLACE               (DOCUSATE SODIUM) [Concomitant]
  7. TAMSULOSIN HCL [Concomitant]
  8. REGLAN [Concomitant]
  9. ALUMINUM HYDROXIDE AND MAGNESIUM TRISILICATE [Concomitant]
  10. POTASSIUM CHLORIDE [Concomitant]

REACTIONS (4)
  - ABDOMINAL PAIN [None]
  - BLOOD POTASSIUM DECREASED [None]
  - DIARRHOEA [None]
  - FATIGUE [None]
